FAERS Safety Report 4805510-0 (Version None)
Quarter: 2005Q4

REPORT INFORMATION
  Report Type: 
  Country: None (occurrence: None)
  Receive Date: 20051018
  Receipt Date: 20051007
  Transmission Date: 20060501
  Serious: Yes (Other)
  Sender: FDA-Public Use
  Company Number: HQWYE742729SEP05

PATIENT
  Age: 65 Year
  Sex: Female
  Weight: 68.1 kg

DRUGS (8)
  1. PROTONIX [Suspect]
     Indication: ABDOMINAL DISCOMFORT
     Dosage: SEE IMAGE, ORAL
     Route: 048
     Dates: start: 20030101, end: 20050926
  2. PROTONIX [Suspect]
     Indication: COUGH
     Dosage: SEE IMAGE, ORAL
     Route: 048
     Dates: start: 20030101, end: 20050926
  3. PROTONIX [Suspect]
     Indication: GASTROOESOPHAGEAL REFLUX DISEASE
     Dosage: SEE IMAGE, ORAL
     Route: 048
     Dates: start: 20030101, end: 20050926
  4. PROTONIX [Suspect]
     Indication: ABDOMINAL DISCOMFORT
     Dosage: SEE IMAGE, ORAL
     Route: 048
     Dates: start: 20050927
  5. PROTONIX [Suspect]
     Indication: COUGH
     Dosage: SEE IMAGE, ORAL
     Route: 048
     Dates: start: 20050927
  6. PROTONIX [Suspect]
     Indication: GASTROOESOPHAGEAL REFLUX DISEASE
     Dosage: SEE IMAGE, ORAL
     Route: 048
     Dates: start: 20050927
  7. PREMARIN [Concomitant]
  8. TEARS NATURALE (DEXTRAN 70/HYPROMELLOSE) [Concomitant]

REACTIONS (5)
  - CONDITION AGGRAVATED [None]
  - DRUG INEFFECTIVE [None]
  - DRY EYE [None]
  - HEADACHE [None]
  - PHOTOPHOBIA [None]
